FAERS Safety Report 24684479 (Version 1)
Quarter: 2024Q4

REPORT INFORMATION
  Report Type: Spontaneous
  Country: US (occurrence: US)
  Receive Date: 20241202
  Receipt Date: 20241202
  Transmission Date: 20250114
  Serious: No
  Sender: AMGEN
  Company Number: US-AMGEN-USASP2024232788

PATIENT
  Age: 42 Year
  Sex: Male

DRUGS (4)
  1. RITUXIMAB [Suspect]
     Active Substance: RITUXIMAB
     Indication: Eosinophilic granulomatosis with polyangiitis
     Dosage: 1 GRAM
     Route: 065
  2. RITUXIMAB [Suspect]
     Active Substance: RITUXIMAB
     Dosage: 800 MILLIGRAM
     Route: 040
  3. PREDNISONE [Suspect]
     Active Substance: PREDNISONE
     Indication: Eosinophilic granulomatosis with polyangiitis
     Dosage: TAPER
     Route: 065
  4. METHYLPREDNISOLONE [Concomitant]
     Active Substance: METHYLPREDNISOLONE
     Dosage: 1 GRAM, QD, FOR 3 DAYS

REACTIONS (4)
  - Therapy non-responder [Unknown]
  - Proteinuria [Unknown]
  - Blood creatinine increased [Unknown]
  - Off label use [Unknown]
